FAERS Safety Report 8569012-0 (Version None)
Quarter: 2012Q3

REPORT INFORMATION
  Report Type: 
  Country: None (occurrence: None)
  Receive Date: 20120803
  Receipt Date: 20120502
  Transmission Date: 20120928
  Serious: No
  Sender: FDA-Public Use
  Company Number: US-ABBOTT-12P-163-0929550-00

PATIENT
  Sex: Male
  Weight: 106.24 kg

DRUGS (11)
  1. NIASPAN [Suspect]
     Indication: HIGH DENSITY LIPOPROTEIN DECREASED
  2. ASPIRIN [Concomitant]
     Indication: PRODUCT USED FOR UNKNOWN INDICATION
     Dosage: 30 MINUTES BEFORE THE NIASPAN
  3. CHOLORATABS [Concomitant]
     Indication: PRODUCT USED FOR UNKNOWN INDICATION
  4. NEXIUM [Concomitant]
     Indication: PRODUCT USED FOR UNKNOWN INDICATION
  5. LEXAPRO [Concomitant]
     Indication: PRODUCT USED FOR UNKNOWN INDICATION
  6. NIASPAN [Suspect]
     Indication: BLOOD TRIGLYCERIDES INCREASED
     Dosage: AT BEDTIME
     Dates: start: 20120417, end: 20120424
  7. NIASPAN [Suspect]
     Indication: LOW DENSITY LIPOPROTEIN INCREASED
  8. LIPITOR [Concomitant]
     Indication: PRODUCT USED FOR UNKNOWN INDICATION
  9. ASCORBIC ACID [Concomitant]
     Indication: PRODUCT USED FOR UNKNOWN INDICATION
  10. HYDROCHOLOROTHIAZIDE [Concomitant]
     Indication: PRODUCT USED FOR UNKNOWN INDICATION
  11. ALTENONOL [Concomitant]
     Indication: PRODUCT USED FOR UNKNOWN INDICATION
     Dosage: 75 MG

REACTIONS (2)
  - FLUSHING [None]
  - PARAESTHESIA [None]
